FAERS Safety Report 25842052 (Version 1)
Quarter: 2025Q3

REPORT INFORMATION
  Report Type: Spontaneous
  Country: CN (occurrence: CN)
  Receive Date: 20250924
  Receipt Date: 20250924
  Transmission Date: 20251020
  Serious: Yes (Other)
  Sender: FRESENIUS KABI
  Company Number: CN-FreseniusKabi-FK202512830

PATIENT
  Age: 45 Year
  Sex: Female
  Weight: 71 kg

DRUGS (3)
  1. PROPOFOL [Suspect]
     Active Substance: PROPOFOL
     Indication: Oesophagogastroscopy
     Dosage: FOA: INJECTION
     Route: 041
     Dates: start: 20250915, end: 20250915
  2. PROPOFOL [Suspect]
     Active Substance: PROPOFOL
  3. REMIMAZOLAM BESYLATE [Concomitant]
     Active Substance: REMIMAZOLAM BESYLATE
     Indication: Oesophagogastroscopy
     Dosage: FOA: INJECTION
     Route: 041
     Dates: start: 20250915, end: 20250915

REACTIONS (1)
  - Anaphylactic shock [Recovered/Resolved]

NARRATIVE: CASE EVENT DATE: 20250915
